FAERS Safety Report 8073973-6 (Version None)
Quarter: 2012Q1

REPORT INFORMATION
  Report Type: 
  Country: None (occurrence: None)
  Receive Date: 20120126
  Receipt Date: 20120117
  Transmission Date: 20120608
  Serious: Yes (Hospitalization)
  Sender: FDA-Public Use
  Company Number: US-ELI_LILLY_AND_COMPANY-US201201005476

PATIENT
  Age: 79 Year
  Sex: Male

DRUGS (1)
  1. EFFIENT [Suspect]
     Indication: CORONARY ARTERY BYPASS
     Dosage: UNK, UNKNOWN
     Route: 065

REACTIONS (2)
  - OFF LABEL USE [None]
  - CHEST PAIN [None]
